FAERS Safety Report 13071076 (Version 1)
Quarter: 2016Q4

REPORT INFORMATION
  Report Type: Report from Study
  Country: US (occurrence: US)
  Receive Date: 20161229
  Receipt Date: 20161229
  Transmission Date: 20170207
  Serious: No
  Sender: FDA-Public Use
  Company Number: PHEH2016US033869

PATIENT
  Age: 55 Year
  Sex: Male

DRUGS (1)
  1. COSENTYX [Suspect]
     Active Substance: SECUKINUMAB
     Indication: PSORIASIS
     Dosage: 300 MG, QW
     Route: 065
     Dates: start: 20161215

REACTIONS (5)
  - Arthropod bite [Unknown]
  - Tenderness [Unknown]
  - Skin infection [Unknown]
  - Inflammation [Unknown]
  - Erythema [Unknown]

NARRATIVE: CASE EVENT DATE: 20161224
